FAERS Safety Report 21614693 (Version 1)
Quarter: 2022Q4

REPORT INFORMATION
  Report Type: Spontaneous
  Country: US (occurrence: None)
  Receive Date: 20221118
  Receipt Date: 20221118
  Transmission Date: 20230113
  Serious: No
  Sender: FDA-Public Use
  Company Number: 2022A357252

PATIENT
  Age: 55 Year
  Sex: Female
  Weight: 99.8 kg

DRUGS (11)
  1. FARXIGA [Suspect]
     Active Substance: DAPAGLIFLOZIN PROPANEDIOL
     Indication: Product used for unknown indication
     Route: 048
     Dates: start: 202207
  2. KORLYM [Suspect]
     Active Substance: MIFEPRISTONE
     Indication: Cushing^s syndrome
     Dosage: 300.0MG UNKNOWN
     Route: 048
     Dates: start: 20220213, end: 20220226
  3. KORLYM [Suspect]
     Active Substance: MIFEPRISTONE
     Indication: Cushing^s syndrome
     Dosage: 300.0MG UNKNOWN
     Route: 048
     Dates: start: 20220227
  4. ENALAPRIL [Concomitant]
     Active Substance: ENALAPRIL
  5. ATORVASTATIN (AVONVASTATIN) [Concomitant]
  6. METFORMIN (METFORMTN) [Concomitant]
  7. OXYBUTYNIN [Concomitant]
     Active Substance: OXYBUTYNIN
  8. VITAMINS [Concomitant]
     Active Substance: VITAMINS
  9. BASAGLAR [Concomitant]
     Active Substance: INSULIN GLARGINE
  10. ADMELOG [Concomitant]
     Active Substance: INSULIN LISPRO
  11. ASPIRIN [Concomitant]
     Active Substance: ASPIRIN

REACTIONS (3)
  - Osteoporosis [Unknown]
  - Blood potassium decreased [Unknown]
  - Rash [Unknown]

NARRATIVE: CASE EVENT DATE: 20220101
